FAERS Safety Report 16016318 (Version 2)
Quarter: 2019Q1

REPORT INFORMATION
  Report Type: Report from Study
  Country: HU (occurrence: HU)
  Receive Date: 20190228
  Receipt Date: 20190319
  Transmission Date: 20190418
  Serious: Yes (Hospitalization, Other)
  Sender: FDA-Public Use
  Company Number: HU-SA-2019SA050945

PATIENT
  Age: 75 Year
  Sex: Female
  Weight: 65 kg

DRUGS (13)
  1. GEMCITABINE HYDROCHLORIDE. [Suspect]
     Active Substance: GEMCITABINE HYDROCHLORIDE
     Dosage: 900 MG/M2, Q3W  (DAY ONE AND THREE OF EACH 21 DAYS)
     Route: 042
     Dates: start: 20180102, end: 20180102
  2. MEGACE [Concomitant]
     Active Substance: MEGESTROL ACETATE
     Indication: DECREASED APPETITE
     Dosage: UNK UNK, UNK
     Route: 065
     Dates: start: 20171220
  3. MALTOFER FOL [Concomitant]
     Active Substance: FOLIC ACID\IRON POLYMALTOSE
     Indication: ANAEMIA
     Dosage: UNK UNK, UNK
     Route: 065
  4. CLEXANE [Concomitant]
     Active Substance: ENOXAPARIN SODIUM
     Indication: THROMBOSIS PROPHYLAXIS
     Dosage: UNK UNK, UNK
     Route: 065
     Dates: start: 20180731
  5. DOCETAXEL. [Suspect]
     Active Substance: DOCETAXEL
     Indication: SOFT TISSUE SARCOMA
     Dosage: 75 MG/M2, Q3W (EVERY 8 DAY OF EACH 21 DAYS)
     Route: 042
     Dates: start: 20171024, end: 20171024
  6. DOCETAXEL. [Suspect]
     Active Substance: DOCETAXEL
     Dosage: 75 MG/M2, Q3W  (EVERY 8 DAY OF EACH 21 DAYS)
     Route: 042
     Dates: start: 20171205, end: 20171205
  7. DOCETAXEL. [Suspect]
     Active Substance: DOCETAXEL
     Dosage: UNK UNK, UNK
     Route: 042
     Dates: start: 20181030, end: 20181030
  8. THEOPHYLLINE [Concomitant]
     Active Substance: THEOPHYLLINE ANHYDROUS
     Indication: BRADYCARDIA
     Dosage: UNK UNK, UNK
     Route: 065
     Dates: start: 2014
  9. QUAMATEL [Concomitant]
     Active Substance: FAMOTIDINE
     Indication: PROPHYLAXIS
     Dosage: UNK UNK, UNK
     Route: 065
     Dates: start: 20180731
  10. GEMCITABINE HYDROCHLORIDE. [Suspect]
     Active Substance: GEMCITABINE HYDROCHLORIDE
     Dosage: UNK UNK, UNK
     Route: 042
     Dates: start: 20181030, end: 20181030
  11. GEMCITABINE HYDROCHLORIDE. [Suspect]
     Active Substance: GEMCITABINE HYDROCHLORIDE
     Dosage: 675 MG/M2, Q3W  (DAY ONE AND THREE OF EACH 21 DAYS)
     Route: 042
     Dates: start: 20180109, end: 20180109
  12. DOCETAXEL. [Suspect]
     Active Substance: DOCETAXEL
     Dosage: 60 MG/M2, Q3W  (EVERY 8 DAY OF EACH 21 DAYS)
     Route: 042
     Dates: start: 20180109, end: 20180109
  13. GEMCITABINE HYDROCHLORIDE. [Suspect]
     Active Substance: GEMCITABINE HYDROCHLORIDE
     Indication: SOFT TISSUE SARCOMA
     Dosage: 900 MG/M2, Q3W (DAY ONE AND THREE OF EACH 21 DAYS)
     Route: 042
     Dates: start: 20171016, end: 20171016

REACTIONS (4)
  - Erysipelas [Recovered/Resolved]
  - Dehydration [Recovered/Resolved]
  - Enterocolitis [Recovered/Resolved]
  - Diarrhoea [Recovered/Resolved]

NARRATIVE: CASE EVENT DATE: 20181109
